FAERS Safety Report 8307665-2 (Version None)
Quarter: 2012Q2

REPORT INFORMATION
  Report Type: 
  Country: None (occurrence: None)
  Receive Date: 20120424
  Receipt Date: 20120424
  Transmission Date: 20120825
  Serious: Yes (Other)
  Sender: FDA-Public Use
  Company Number: None

PATIENT
  Age: 59 Year
  Sex: Male
  Weight: 113.39 kg

DRUGS (3)
  1. INCIVEK [Concomitant]
  2. INCIVEK [Suspect]
     Indication: HEPATITIS C
     Dosage: 750 MG
     Route: 048
     Dates: start: 20110830, end: 20111130
  3. PEGASYS [Concomitant]
     Indication: HEPATITIS C
     Dosage: 180 UG/0.5ML
     Route: 058
     Dates: start: 20110830, end: 20111207

REACTIONS (1)
  - VIRAL LOAD INCREASED [None]
